FAERS Safety Report 15465245 (Version 1)
Quarter: 2018Q4

REPORT INFORMATION
  Report Type: Spontaneous
  Country: CA (occurrence: CA)
  Receive Date: 20181004
  Receipt Date: 20181004
  Transmission Date: 20190204
  Serious: Yes (Hospitalization, Other)
  Sender: FDA-Public Use
  Company Number: CA-PFIZER INC-2018396674

PATIENT
  Age: 23 Year
  Sex: Female

DRUGS (8)
  1. BUPIVACAINE HCL [Suspect]
     Active Substance: BUPIVACAINE HYDROCHLORIDE
     Indication: ABDOMINAL PAIN
     Dosage: 20 ML, UNK
     Route: 040
  2. FENTANYL TRANSDERMAL SYSTEM [Suspect]
     Active Substance: FENTANYL
     Indication: ABDOMINAL PAIN
     Dosage: 75 UG, UNK (EVERY 1 HOUR)
     Route: 062
  3. EPINEPHRINE. [Suspect]
     Active Substance: EPINEPHRINE
     Indication: ABDOMINAL PAIN
     Dosage: UNK
     Route: 040
  4. ROPIVACAINE HYDROCHLORIDE. [Suspect]
     Active Substance: ROPIVACAINE HYDROCHLORIDE
     Indication: ABDOMINAL PAIN
     Dosage: 20 ML, UNK
     Route: 040
  5. HYDROMORPHONE HYDROCHLORIDE. [Suspect]
     Active Substance: HYDROMORPHONE HYDROCHLORIDE
     Indication: ABDOMINAL PAIN
     Dosage: 50 MG, UNK
     Route: 042
  6. ASCORBIC ACID;BIOTIN;CALCIUM GLUCONATE;CALCIUM LACTOPHOSPHATE;CALCIUM [Concomitant]
     Dosage: UNK
     Route: 065
  7. HYDROMORPHONE HYDROCHLORIDE. [Suspect]
     Active Substance: HYDROMORPHONE HYDROCHLORIDE
     Dosage: 30 MG, UNK
     Route: 042
  8. APO HYDROMORPHONE [Suspect]
     Active Substance: HYDROMORPHONE HYDROCHLORIDE
     Indication: ABDOMINAL PAIN
     Dosage: UNK
     Route: 048

REACTIONS (3)
  - Drug effect incomplete [Unknown]
  - Drug ineffective [Recovered/Resolved]
  - Hyperaesthesia [Unknown]
